FAERS Safety Report 21646407 (Version 1)
Quarter: 2022Q4

REPORT INFORMATION
  Report Type: Spontaneous
  Country: DE (occurrence: DE)
  Receive Date: 20221126
  Receipt Date: 20221126
  Transmission Date: 20230113
  Serious: Yes (Hospitalization)
  Sender: FDA-Public Use
  Company Number: None

PATIENT
  Age: 80 Year
  Sex: Male

DRUGS (11)
  1. CLOPIDOGREL [Suspect]
     Active Substance: CLOPIDOGREL BISULFATE
     Indication: Product used for unknown indication
     Dosage: 75 MG, 1-0-0-0
  2. OMEPRAZOLE [Concomitant]
     Active Substance: OMEPRAZOLE
     Dosage: STRENGTH: 10 MG, 1-0-0-0
  3. CANDESARTAN [Concomitant]
     Active Substance: CANDESARTAN
     Dosage: 8 MG, 1-0-0-0
  4. EUTHYROX [Concomitant]
     Active Substance: LEVOTHYROXINE SODIUM
     Dosage: STRENGTH: 0.088MG, 1-0-0-0
  5. FOLIC ACID [Concomitant]
     Active Substance: FOLIC ACID
     Dosage: STRENGTH: 5 MG, 5 MG, 1-0-0-0
  6. TESTOSTERONE [Concomitant]
     Active Substance: TESTOSTERONE
     Dosage: DOSING GEL 16.2MG/G, 1-0-0-0
  7. HYDROMORPHONE [Concomitant]
     Active Substance: HYDROMORPHONE
     Dosage: 10 MG, 1-0-1-0
  8. LYRICA [Concomitant]
     Active Substance: PREGABALIN
     Dosage: STRENGTH: 75 MG, 1-0-0-0
  9. METOPROLOL [Concomitant]
     Active Substance: METOPROLOL
     Dosage: 95 MG, 1-0-0-0
  10. Pravidel [Concomitant]
     Dosage: STRENGTH:  2.5 MG, 1-0-1-0
  11. SIMVASTATIN [Concomitant]
     Active Substance: SIMVASTATIN
     Dosage: 20 MG, 0-0-1-0

REACTIONS (8)
  - Palpitations [Unknown]
  - Haemorrhage [Unknown]
  - Fatigue [Unknown]
  - Iron deficiency anaemia [Unknown]
  - Blood loss anaemia [Unknown]
  - Dyspnoea [Unknown]
  - Dizziness [Unknown]
  - Pallor [Unknown]
